FAERS Safety Report 5107549-7 (Version None)
Quarter: 2006Q3

REPORT INFORMATION
  Report Type: 
  Country: None (occurrence: None)
  Receive Date: 20060913
  Receipt Date: 20060913
  Transmission Date: 20061208
  Serious: Yes (Other)
  Sender: FDA-Public Use
  Company Number: None

PATIENT
  Sex: Female
  Weight: 78 kg

DRUGS (1)
  1. ERWINIA L-ASPARAGINASE [Suspect]
     Indication: DRUG THERAPY
     Dosage: 48, 750IU X6 IM
     Route: 030
     Dates: start: 20060607, end: 20060609

REACTIONS (2)
  - DRUG HYPERSENSITIVITY [None]
  - DRUG INTOLERANCE [None]
